FAERS Safety Report 18605185 (Version 4)
Quarter: 2023Q2

REPORT INFORMATION
  Report Type: Report from Study
  Country: GB (occurrence: GB)
  Receive Date: 20201211
  Receipt Date: 20230628
  Transmission Date: 20230721
  Serious: Yes (Death)
  Sender: FDA-Public Use
  Company Number: GB-PFIZER INC-2020488510

PATIENT
  Age: 55 Year
  Sex: Male

DRUGS (21)
  1. PREGABALIN [Suspect]
     Active Substance: PREGABALIN
     Dosage: 223000 NANOGRAM PER MILLLIITER (FEMORAL BLOOD)
  2. PREGABALIN [Suspect]
     Active Substance: PREGABALIN
     Dosage: UNK (22300 UG/ML FEMORAL BLOOD CONCENTRATION)
  3. PREGABALIN [Suspect]
     Active Substance: PREGABALIN
     Dosage: UNK
  4. ETIZOLAM [Suspect]
     Active Substance: ETIZOLAM
     Dosage: 7 NANOGRAM PER MILLLIITER (FEMORAL BLOOD)
     Route: 048
  5. ETIZOLAM [Suspect]
     Active Substance: ETIZOLAM
     Dosage: UNK (7UG/ML FEMORA BLOOD CONCENTRATION)
     Route: 065
  6. ETIZOLAM [Suspect]
     Active Substance: ETIZOLAM
     Dosage: UNK
     Route: 048
  7. COCAINE [Suspect]
     Active Substance: COCAINE
     Dosage: 317 NANOGRAM PER MILLLIITER (FEMORAL BLOOD)
     Route: 065
  8. COCAINE [Suspect]
     Active Substance: COCAINE
     Dosage: UNK (317 UG/ML FEMORAL BLOOD CONCENTRATION)
     Route: 065
  9. COCAINE [Suspect]
     Active Substance: COCAINE
     Dosage: UNK
     Route: 065
  10. BENZOYLECGONINE [Suspect]
     Active Substance: BENZOYLECGONINE
     Dosage: 5135 NANOGRAM PER MILLLIITER
     Route: 065
  11. BENZOYLECGONINE [Suspect]
     Active Substance: BENZOYLECGONINE
     Dosage: UNK (5135 UG/ML FEMORAL BLOOD CONCENTRATION)
     Route: 065
  12. BENZOYLECGONINE [Suspect]
     Active Substance: BENZOYLECGONINE
     Dosage: UNK
     Route: 065
  13. DIHYDROCODEINE [Suspect]
     Active Substance: DIHYDROCODEINE
     Dosage: 1681 NANOGRAM PER MILLLIITER (FEMORAL BLOOD)
     Route: 065
  14. DIHYDROCODEINE [Suspect]
     Active Substance: DIHYDROCODEINE
     Dosage: UNK (1681 UG/ML FEMORAL BLOOD CONCENTRATION)
     Route: 065
  15. DIHYDROCODEINE [Suspect]
     Active Substance: DIHYDROCODEINE
     Dosage: UNK
     Route: 065
  16. AMITRIPTYLINE [Suspect]
     Active Substance: AMITRIPTYLINE
     Dosage: 1859 NANOGRAM PER MILLLIITER (FEMORAL BLOOD)
     Route: 065
  17. AMITRIPTYLINE [Suspect]
     Active Substance: AMITRIPTYLINE
     Dosage: 1859 FEMORAL BLOOD CONCENTRATION
     Route: 065
  18. AMITRIPTYLINE [Suspect]
     Active Substance: AMITRIPTYLINE
     Dosage: UNK
     Route: 065
  19. NORTRIPTYLINE [Suspect]
     Active Substance: NORTRIPTYLINE
     Dosage: 582 NANOGRAM PER MILLLIITER (FEMORAL BLOOD)
     Route: 065
  20. NORTRIPTYLINE [Suspect]
     Active Substance: NORTRIPTYLINE
     Dosage: UNK (582 UG/ML FEMORAL BLOOD)
  21. NORTRIPTYLINE [Suspect]
     Active Substance: NORTRIPTYLINE
     Dosage: UNK
     Route: 065

REACTIONS (2)
  - Drug abuse [Fatal]
  - Toxicity to various agents [Fatal]
